FAERS Safety Report 16831127 (Version 1)
Quarter: 2019Q3

REPORT INFORMATION
  Report Type: Spontaneous
  Country: IT (occurrence: IT)
  Receive Date: 20190920
  Receipt Date: 20190920
  Transmission Date: 20191005
  Serious: Yes (Hospitalization)
  Sender: FDA-Public Use
  Company Number: IT-009507513-1909ITA006274

PATIENT
  Age: 61 Year
  Sex: Male

DRUGS (2)
  1. CUBICIN [Suspect]
     Active Substance: DAPTOMYCIN
     Indication: STAPHYLOCOCCAL INFECTION
     Dosage: 500 MILLIGRAM, QD, FORMULATION: POWDER FOR SOLUTION FOR INJECTION OR INFUSION
     Route: 042
  2. PIPERACILLIN SODIUM (+) TAZOBACTAM [Concomitant]

REACTIONS (3)
  - Hepatocellular injury [Recovered/Resolved with Sequelae]
  - Hyperphosphatasaemia [Recovered/Resolved with Sequelae]
  - Hyperbilirubinaemia [Recovered/Resolved with Sequelae]
